FAERS Safety Report 8281836-6 (Version None)
Quarter: 2012Q2

REPORT INFORMATION
  Report Type: 
  Country: None (occurrence: None)
  Receive Date: 20120410
  Receipt Date: 20120326
  Transmission Date: 20120825
  Serious: No
  Sender: FDA-Public Use
  Company Number: SPI201200062

PATIENT
  Age: 40 Year
  Sex: Female
  Weight: 58.9676 kg

DRUGS (2)
  1. AMITIZA [Suspect]
     Indication: CONSTIPATION
     Dosage: 24 MCG, BID AS NEEDED, ORAL       24 MCG, SINGLE, ORAL
     Route: 048
     Dates: start: 20120326, end: 20120326
  2. AMITIZA [Suspect]
     Indication: CONSTIPATION
     Dosage: 24 MCG, BID AS NEEDED, ORAL       24 MCG, SINGLE, ORAL
     Route: 048
     Dates: start: 20111201, end: 20120319

REACTIONS (7)
  - PANIC ATTACK [None]
  - CHEST DISCOMFORT [None]
  - NAUSEA [None]
  - DYSPNOEA [None]
  - HEADACHE [None]
  - TACHYCARDIA [None]
  - PALPITATIONS [None]
